FAERS Safety Report 4840286-2 (Version None)
Quarter: 2005Q4

REPORT INFORMATION
  Report Type: 
  Country: None (occurrence: None)
  Receive Date: 20051031
  Receipt Date: 20050701
  Transmission Date: 20060501
  Serious: Yes (Other)
  Sender: FDA-Public Use
  Company Number: 200515588US

PATIENT
  Age: 61 Year
  Sex: Male

DRUGS (2)
  1. KETEK [Suspect]
     Dosage: 800 MG QD
  2. ALLEGRA [Concomitant]

REACTIONS (4)
  - ABDOMINAL PAIN UPPER [None]
  - ABNORMAL FAECES [None]
  - CLOSTRIDIUM COLITIS [None]
  - DIARRHOEA [None]
